FAERS Safety Report 6387325-8 (Version None)
Quarter: 2009Q3

REPORT INFORMATION
  Report Type: 
  Country: None (occurrence: None)
  Receive Date: 20090930
  Receipt Date: 20090914
  Transmission Date: 20100115
  Serious: Yes (Hospitalization)
  Sender: FDA-Public Use
  Company Number: 2009AL001586

PATIENT
  Age: 68 Year
  Sex: Female

DRUGS (31)
  1. DIGOXIN [Suspect]
     Indication: HEART RATE IRREGULAR
     Dosage: 0.125MG, DAILY, PO
     Route: 048
     Dates: start: 20040427
  2. RAMIPRIL [Concomitant]
  3. LEVAQUIN [Concomitant]
  4. COREG [Concomitant]
  5. MAGNESIUM OXIDE [Concomitant]
  6. LASIX [Concomitant]
  7. POTASSIUM CHLORIDE [Concomitant]
  8. ASPIRIN [Concomitant]
  9. PLAVIX [Concomitant]
  10. BYETTA [Concomitant]
  11. JANUVIA [Concomitant]
  12. GLUCOTROL [Concomitant]
  13. PLENDIL [Concomitant]
  14. CEFACLOR [Concomitant]
  15. GLUCOPHAGE [Concomitant]
  16. ZITHROMAX [Concomitant]
  17. COMBIVENT [Concomitant]
  18. PREDNISONE [Concomitant]
  19. AZITHROMYCIN [Concomitant]
  20. NOVASUS [Concomitant]
  21. AMBIEN [Concomitant]
  22. GLIPIZIDE [Concomitant]
  23. ALTACE [Concomitant]
  24. METFORMIN HYDROCHLORIDE [Concomitant]
  25. VYTORIN [Concomitant]
  26. VIGAMOX [Concomitant]
  27. CARVEDILOL [Concomitant]
  28. PROTONIX [Concomitant]
  29. TYLENOL (CAPLET) [Concomitant]
  30. COLACE [Concomitant]
  31. ASPIRIN [Concomitant]

REACTIONS (23)
  - ANXIETY [None]
  - ARTERIAL THROMBOSIS LIMB [None]
  - CARDIAC FAILURE CONGESTIVE [None]
  - CAROTID ARTERY STENOSIS [None]
  - CHEST PAIN [None]
  - CONDITION AGGRAVATED [None]
  - DYSPNOEA [None]
  - ECONOMIC PROBLEM [None]
  - EJECTION FRACTION DECREASED [None]
  - FALL [None]
  - FATIGUE [None]
  - FEMORAL ARTERIAL STENOSIS [None]
  - FIBRIN D DIMER INCREASED [None]
  - GRANULOMA [None]
  - HUMERUS FRACTURE [None]
  - IMPLANT SITE ERYTHEMA [None]
  - INTERMITTENT CLAUDICATION [None]
  - MULTIPLE INJURIES [None]
  - MUSCULOSKELETAL PAIN [None]
  - MYOCARDIAL INFARCTION [None]
  - PAIN [None]
  - POSTOPERATIVE FEVER [None]
  - THERAPEUTIC AGENT TOXICITY [None]
